FAERS Safety Report 6064940-2 (Version None)
Quarter: 2009Q1

REPORT INFORMATION
  Report Type: 
  Country: None (occurrence: None)
  Receive Date: 20090204
  Receipt Date: 20090128
  Transmission Date: 20090719
  Serious: Yes (Other)
  Sender: FDA-Public Use
  Company Number: US-MERCK-0901USA04177

PATIENT
  Age: 65 Year
  Sex: Male

DRUGS (9)
  1. JANUVIA [Suspect]
     Indication: TYPE 2 DIABETES MELLITUS
     Route: 048
     Dates: start: 20090101
  2. GLUCOPHAGE [Suspect]
     Route: 065
  3. GLUCOTROL [Concomitant]
     Route: 065
  4. PAXIL [Concomitant]
     Route: 065
  5. COREG [Concomitant]
     Route: 065
  6. LISINOPRIL [Concomitant]
     Route: 065
  7. METHADONE HYDROCHLORIDE [Concomitant]
     Indication: PAIN
     Route: 065
  8. PERCOCET [Concomitant]
     Route: 065
  9. CRESTOR [Concomitant]
     Route: 065

REACTIONS (4)
  - BLOOD GLUCOSE DECREASED [None]
  - INSOMNIA [None]
  - PRURITUS [None]
  - SHOCK [None]
